FAERS Safety Report 7354872-1 (Version None)
Quarter: 2011Q1

REPORT INFORMATION
  Report Type: 
  Country: None (occurrence: None)
  Receive Date: 20110307
  Receipt Date: 20110217
  Transmission Date: 20110831
  Serious: Yes (Other)
  Sender: FDA-Public Use
  Company Number: ALA_01764_2011

PATIENT
  Age: 52 Year
  Sex: Female

DRUGS (2)
  1. PENTASA [Suspect]
     Indication: COLITIS ULCERATIVE
     Dosage: DF RECTAL
     Route: 054
  2. MESALAMINE [Suspect]
     Indication: COLITIS ULCERATIVE
     Dosage: 3G/DAY ORAL
     Route: 048

REACTIONS (3)
  - DRUG RESISTANCE [None]
  - PYREXIA [None]
  - COUGH [None]
